FAERS Safety Report 13840442 (Version 2)
Quarter: 2018Q1

REPORT INFORMATION
  Report Type: Spontaneous
  Country: JP (occurrence: JP)
  Receive Date: 20170807
  Receipt Date: 20180109
  Transmission Date: 20180508
  Serious: Yes (Death, Other)
  Sender: FDA-Public Use
  Company Number: JP-009507513-1707JPN001920J

PATIENT
  Age: 62 Year
  Sex: Male
  Weight: 56 kg

DRUGS (3)
  1. CODEINE PHOSPHATE HYDRATE [Concomitant]
     Active Substance: CODEINE PHOSPHATE
     Indication: SQUAMOUS CELL CARCINOMA OF LUNG
     Dosage: 20 MG, TID
     Route: 048
     Dates: end: 20170701
  2. NEXIUM [Concomitant]
     Active Substance: ESOMEPRAZOLE MAGNESIUM
     Indication: SQUAMOUS CELL CARCINOMA OF LUNG
     Dosage: 20.0 MG, QD
     Route: 048
     Dates: start: 20170610, end: 20170701
  3. KEYTRUDA [Suspect]
     Active Substance: PEMBROLIZUMAB
     Indication: SQUAMOUS CELL CARCINOMA OF LUNG
     Dosage: 200 MG, Q3W
     Route: 041
     Dates: start: 20170605, end: 20170626

REACTIONS (1)
  - Malignant neoplasm progression [Fatal]

NARRATIVE: CASE EVENT DATE: 20170703
